FAERS Safety Report 19975132 (Version 1)
Quarter: 2021Q4

REPORT INFORMATION
  Report Type: Spontaneous
  Country: US (occurrence: US)
  Receive Date: 20211020
  Receipt Date: 20211020
  Transmission Date: 20220304
  Serious: No
  Sender: FDA-Public Use
  Company Number: US-NESTLEHEALTHSCIENCE-2021000004

PATIENT
  Age: 58 Year
  Sex: Male

DRUGS (1)
  1. ZENPEP [Suspect]
     Active Substance: PANCRELIPASE AMYLASE\PANCRELIPASE LIPASE\PANCRELIPASE PROTEASE
     Dosage: AS PER PRESCRIPTION; 6 PILLS A DAY , 2 WITH EACH MEAL. HOWEVER, PATIENT TOOK ONLY TAKE 1 A DAY.
     Dates: start: 2020

REACTIONS (3)
  - Intentional product misuse [Not Recovered/Not Resolved]
  - Expired product administered [Unknown]
  - Inability to afford medication [Not Recovered/Not Resolved]

NARRATIVE: CASE EVENT DATE: 20210112
